FAERS Safety Report 25994218 (Version 1)
Quarter: 2025Q4

REPORT INFORMATION
  Report Type: Spontaneous
  Country: US (occurrence: US)
  Receive Date: 20251104
  Receipt Date: 20251104
  Transmission Date: 20260118
  Serious: Yes (Other)
  Sender: COOPERSURGICAL
  Company Number: US-COOPERSURGICAL, INC.-2025CPS007634

PATIENT
  Age: 22 Year
  Sex: Female
  Weight: 89.796 kg

DRUGS (1)
  1. PARAGARD T 380A [Suspect]
     Active Substance: COPPER
     Indication: Contraception
     Dosage: UNK
     Route: 015
     Dates: start: 20140804

REACTIONS (19)
  - Surgery [Recovered/Resolved]
  - Device breakage [Not Recovered/Not Resolved]
  - Foreign body in reproductive tract [Not Recovered/Not Resolved]
  - Complication of device removal [Not Recovered/Not Resolved]
  - Uterine perforation [Unknown]
  - Embedded device [Not Recovered/Not Resolved]
  - Device material issue [Not Recovered/Not Resolved]
  - Urinary tract infection [Unknown]
  - Emotional distress [Unknown]
  - Dyspareunia [Not Recovered/Not Resolved]
  - Unintentional medical device removal [Not Recovered/Not Resolved]
  - Device expulsion [Recovered/Resolved]
  - Dysmenorrhoea [Unknown]
  - Heavy menstrual bleeding [Unknown]
  - Abdominal distension [Unknown]
  - Muscle spasms [Unknown]
  - Pelvic pain [Unknown]
  - Discomfort [Unknown]
  - Pain [Unknown]

NARRATIVE: CASE EVENT DATE: 20140826
